FAERS Safety Report 21799253 (Version 1)
Quarter: 2022Q4

REPORT INFORMATION
  Report Type: Report from Study
  Country: JP (occurrence: JP)
  Receive Date: 20221230
  Receipt Date: 20221230
  Transmission Date: 20230113
  Serious: Yes (Death, Other)
  Sender: FDA-Public Use
  Company Number: JP-CELLTRION INC.-2022JP021807

PATIENT

DRUGS (14)
  1. INVESTIGATIONAL BIOSIMILARS [Suspect]
     Active Substance: INVESTIGATIONAL BIOSIMILARS
     Indication: HER2 positive gastric cancer
     Dosage: 530 MILLIGRAM, QD; IV DRIP
     Route: 041
     Dates: start: 20210714, end: 20210714
  2. INVESTIGATIONAL BIOSIMILARS [Suspect]
     Active Substance: INVESTIGATIONAL BIOSIMILARS
     Dosage: 390 MILLIGRAM, QD; IV DRIP
     Route: 041
     Dates: start: 20210804, end: 20210804
  3. INVESTIGATIONAL BIOSIMILARS [Suspect]
     Active Substance: INVESTIGATIONAL BIOSIMILARS
     Dosage: 390 MILLIGRAM, QD; IV DRIP
     Route: 041
     Dates: start: 20210825, end: 20210825
  4. FLUOROURACIL [Suspect]
     Active Substance: FLUOROURACIL
     Indication: HER2 positive gastric cancer
     Dosage: 1000 MILLIGRAM, QD; IV DRIP
     Route: 041
     Dates: start: 20210714, end: 20210714
  5. FLUOROURACIL [Suspect]
     Active Substance: FLUOROURACIL
     Dosage: 1000 MILLIGRAM, QD; IV DRIP
     Route: 041
     Dates: start: 20210804, end: 20210804
  6. FLUOROURACIL [Suspect]
     Active Substance: FLUOROURACIL
     Dosage: 1000 MILLIGRAM, QD; IV DRIP
     Route: 041
     Dates: start: 20210825, end: 20210825
  7. FLUOROURACIL [Suspect]
     Active Substance: FLUOROURACIL
     Dosage: 1000 MILLIGRAM, QD; IV DRIP
     Route: 041
     Dates: start: 20210901, end: 20210901
  8. BIO-THREE [Concomitant]
     Active Substance: HERBALS
     Dosage: UNK
     Dates: start: 20210716, end: 20210922
  9. CARBOHYDRATES\FATTY ACIDS\MINERALS\PROTEIN\VITAMINS [Concomitant]
     Active Substance: CARBOHYDRATES\FATTY ACIDS\MINERALS\PROTEIN\VITAMINS
     Dosage: UNK
     Dates: start: 20210811, end: 20210922
  10. MAGNESIUM OXIDE [Concomitant]
     Active Substance: MAGNESIUM OXIDE
     Dosage: UNK
     Dates: start: 20210716, end: 20210922
  11. KETOPROFEN [Concomitant]
     Active Substance: KETOPROFEN
     Indication: HER2 positive gastric cancer
     Dosage: UNK
     Dates: start: 20210825, end: 20210825
  12. UNASYN [Concomitant]
     Active Substance: AMPICILLIN SODIUM\SULBACTAM SODIUM
     Indication: Hypertension
     Dosage: UNK
     Dates: start: 20210922, end: 20210922
  13. BENZETHONIUM CHLORIDE [Concomitant]
     Active Substance: BENZETHONIUM CHLORIDE
     Indication: Prophylaxis
     Dosage: UNK
     Dates: start: 20210901, end: 20210901
  14. DECADRON [Concomitant]
     Active Substance: DEXAMETHASONE
     Indication: Prophylaxis of nausea and vomiting
     Dosage: UNK
     Dates: start: 20210804, end: 20210921

REACTIONS (4)
  - HER2 positive gastric cancer [Fatal]
  - Constipation [Recovering/Resolving]
  - Overdose [Unknown]
  - Underdose [Unknown]

NARRATIVE: CASE EVENT DATE: 20210716
